FAERS Safety Report 4906974-4 (Version None)
Quarter: 2006Q1

REPORT INFORMATION
  Report Type: 
  Country: None (occurrence: None)
  Receive Date: 20060207
  Receipt Date: 20060118
  Transmission Date: 20060701
  Serious: Yes (Other)
  Sender: FDA-Public Use
  Company Number: US200601003036

PATIENT
  Age: 66 Year
  Sex: Female

DRUGS (1)
  1. HUMULIN 70/30 [Suspect]
     Indication: DIABETES MELLITUS NON-INSULIN-DEPENDENT
     Dosage: 50 U, 2/D,
     Dates: start: 19960101

REACTIONS (8)
  - ATRIOVENTRICULAR BLOCK [None]
  - BURNING SENSATION [None]
  - CHEST PAIN [None]
  - COLON CANCER [None]
  - HYPERTENSION [None]
  - HYPOAESTHESIA [None]
  - MEMORY IMPAIRMENT [None]
  - MUSCLE SPASMS [None]
